FAERS Safety Report 7369127-9 (Version None)
Quarter: 2011Q1

REPORT INFORMATION
  Report Type: 
  Country: None (occurrence: None)
  Receive Date: 20110323
  Receipt Date: 20110317
  Transmission Date: 20110831
  Serious: Yes (Hospitalization)
  Sender: FDA-Public Use
  Company Number: FR-ROCHE-752609

PATIENT
  Sex: Female
  Weight: 58 kg

DRUGS (9)
  1. MYCOPHENOLATE MOFETIL [Suspect]
     Route: 048
     Dates: start: 20100905
  2. TENORMIN [Concomitant]
  3. EVEROLIMUS [Suspect]
     Dosage: PERMANENTLY DISCONTINUED.
     Route: 048
     Dates: start: 20101015, end: 20101221
  4. BACTRIM [Concomitant]
     Dates: end: 20101123
  5. PHOSPHONEUROS [Concomitant]
     Dates: end: 20101126
  6. INIPOMP [Concomitant]
  7. PREDNISONE [Suspect]
     Dosage: PERMANENTLY DISCONTINUED
     Route: 048
     Dates: start: 20100906, end: 20101221
  8. ROVALCYTE [Concomitant]
     Dosage: PER 48 HOUR
  9. EPREX [Concomitant]
     Dosage: DOSE; 10,000U

REACTIONS (1)
  - TRANSPLANT REJECTION [None]
